FAERS Safety Report 5369159-6 (Version None)
Quarter: 2007Q2

REPORT INFORMATION
  Report Type: 
  Country: None (occurrence: None)
  Receive Date: 20070625
  Receipt Date: 20070206
  Transmission Date: 20071010
  Serious: No
  Sender: FDA-Public Use
  Company Number: US-ASTRAZENECA-2007UW02486

PATIENT
  Age: 785 Month
  Sex: Female
  Weight: 72.6 kg

DRUGS (1)
  1. CRESTOR [Suspect]
     Indication: BLOOD CHOLESTEROL INCREASED
     Route: 048
     Dates: start: 20061201

REACTIONS (3)
  - ABDOMINAL DISCOMFORT [None]
  - FATIGUE [None]
  - FREQUENT BOWEL MOVEMENTS [None]
